FAERS Safety Report 6467538-7 (Version None)
Quarter: 2009Q4

REPORT INFORMATION
  Report Type: 
  Country: None (occurrence: None)
  Receive Date: 20091202
  Receipt Date: 20091120
  Transmission Date: 20100525
  Serious: No
  Sender: FDA-Public Use
  Company Number: US-B.I. PHARMACEUTICALS,INC./RIDGEFIELD-2009-BP-13555BP

PATIENT
  Age: 51 Year
  Sex: Female

DRUGS (6)
  1. CATAPRES-TTS-1 [Suspect]
     Indication: HEART RATE INCREASED
     Dosage: 0.1 MG
     Route: 061
     Dates: start: 20090901
  2. CATAPRES-TTS-1 [Suspect]
     Indication: POSTURAL ORTHOSTATIC TACHYCARDIA SYNDROME
  3. SYNTHROID [Concomitant]
     Indication: HYPOTHYROIDISM
  4. KLONOPIN [Concomitant]
     Indication: SLEEP DISORDER
  5. SINGULAIR [Concomitant]
     Indication: ASTHMA
  6. RESCUE INHALER [Concomitant]
     Indication: ASTHMA

REACTIONS (3)
  - APPLICATION SITE PAIN [None]
  - APPLICATION SITE VESICLES [None]
  - HEART RATE INCREASED [None]
